FAERS Safety Report 21047910 (Version 4)
Quarter: 2022Q3

REPORT INFORMATION
  Report Type: Spontaneous
  Country: US (occurrence: US)
  Receive Date: 20220706
  Receipt Date: 20220909
  Transmission Date: 20221026
  Serious: No
  Sender: FDA-Public Use
  Company Number: US-UNITED THERAPEUTICS-UNT-2022-013700

PATIENT
  Sex: Female

DRUGS (7)
  1. REMODULIN [Suspect]
     Active Substance: TREPROSTINIL
     Indication: Pulmonary arterial hypertension
     Dosage: UNK, CONTINUING
     Route: 058
     Dates: start: 20210521
  2. REMODULIN [Suspect]
     Active Substance: TREPROSTINIL
     Dosage: 0.0728 ?G/KG, CONTINUING
     Route: 058
  3. REMODULIN [Suspect]
     Active Substance: TREPROSTINIL
     Dosage: 0.0834 ?G/KG, CONTINUING
     Route: 058
  4. REMODULIN [Suspect]
     Active Substance: TREPROSTINIL
     Dosage: 0.0781 ?G/KG, CONTINUING
     Route: 058
  5. REMODULIN [Suspect]
     Active Substance: TREPROSTINIL
     Dosage: 0.0728 ?G/KG, CONTINUING
     Route: 058
     Dates: start: 20220719
  6. REMODULIN [Suspect]
     Active Substance: TREPROSTINIL
     Dosage: 0.06750 ?G/KG, CONTINUING (PUMP RATE OF 0.026 ML/HOUR)
     Route: 058
     Dates: start: 20220831
  7. ADEMPAS [Suspect]
     Active Substance: RIOCIGUAT
     Indication: Product used for unknown indication
     Dosage: UNK
     Route: 065

REACTIONS (4)
  - Dyspepsia [Recovered/Resolved]
  - Nausea [Unknown]
  - Diarrhoea [Unknown]
  - Infusion site pain [Not Recovered/Not Resolved]
